FAERS Safety Report 8590927 (Version 14)
Quarter: 2015Q1

REPORT INFORMATION
  Report Type: Spontaneous
  Country: US (occurrence: US)
  Receive Date: 20120601
  Receipt Date: 20150325
  Transmission Date: 20150721
  Serious: Yes (Hospitalization)
  Sender: FDA-Public Use
  Company Number: US-GLAXOSMITHKLINE-A0979688A

PATIENT
  Age: 64 Year
  Sex: Female

DRUGS (17)
  1. FLOLAN [Suspect]
     Active Substance: EPOPROSTENOL SODIUM
     Indication: PULMONARY ARTERIAL HYPERTENSION
     Dosage: 25.5 NG/KG/MIN, CONCNETRATION 30,000 NG/ML, PUMP RATE 79 ML/DAY, VIAL STRENGTH 1.5 MG
     Route: 042
     Dates: start: 19991001
  2. FLOLAN [Suspect]
     Active Substance: EPOPROSTENOL SODIUM
     Indication: PRODUCT USED FOR UNKNOWN INDICATION
     Dosage: UNKNOWN
     Route: 042
  3. REVATIO [Concomitant]
     Active Substance: SILDENAFIL CITRATE
  4. FLOLAN [Suspect]
     Active Substance: EPOPROSTENOL SODIUM
     Dosage: UNK
     Dates: start: 19991001
  5. ADCIRCA [Concomitant]
     Active Substance: TADALAFIL
  6. FLOLAN [Suspect]
     Active Substance: EPOPROSTENOL SODIUM
     Dosage: UNK
     Dates: start: 19991001
  7. FLOLAN [Suspect]
     Active Substance: EPOPROSTENOL SODIUM
     Dosage: UNK
     Dates: start: 19991001
  8. FLOLAN [Suspect]
     Active Substance: EPOPROSTENOL SODIUM
     Dosage: UNK
     Dates: start: 19991001
  9. FLOLAN [Suspect]
     Active Substance: EPOPROSTENOL SODIUM
     Dosage: 25.5 NG/KG/MIN
  10. ALDACTONE [Concomitant]
     Active Substance: SPIRONOLACTONE
  11. HEPARIN [Concomitant]
     Active Substance: HEPARIN SODIUM
  12. LASIX [Concomitant]
     Active Substance: FUROSEMIDE
  13. LACTULOSE. [Concomitant]
     Active Substance: LACTULOSE
  14. FLOLAN [Suspect]
     Active Substance: EPOPROSTENOL SODIUM
     Dosage: UNK
     Dates: start: 19991001
  15. FLOLAN [Suspect]
     Active Substance: EPOPROSTENOL SODIUM
     Dosage: 25.5 NG/KG/MIN
  16. PRILOSEC [Concomitant]
     Active Substance: OMEPRAZOLE MAGNESIUM
  17. COMBIVENT [Concomitant]
     Active Substance: ALBUTEROL SULFATE\IPRATROPIUM BROMIDE

REACTIONS (12)
  - Biopsy [Unknown]
  - Nasopharyngitis [Unknown]
  - Pain [Unknown]
  - Epistaxis [Unknown]
  - Protrusion tongue [Unknown]
  - Application site perspiration [Unknown]
  - Application site pruritus [Unknown]
  - Rash pruritic [Not Recovered/Not Resolved]
  - Catheter site rash [Not Recovered/Not Resolved]
  - Nerve compression [Unknown]
  - Medical device complication [Unknown]
  - Swollen tongue [Unknown]

NARRATIVE: CASE EVENT DATE: 201408
